FAERS Safety Report 24021089 (Version 1)
Quarter: 2024Q2

REPORT INFORMATION
  Report Type: Report from Study
  Country: US (occurrence: US)
  Receive Date: 20240627
  Receipt Date: 20240627
  Transmission Date: 20240715
  Serious: No
  Sender: FDA-Public Use
  Company Number: US-THERATECHNOLOGIES INC.-2024-THE-IBA-000044

PATIENT

DRUGS (11)
  1. IBALIZUMAB [Suspect]
     Active Substance: IBALIZUMAB
     Indication: Product used for unknown indication
     Dosage: 2000 MG, (LOADING DOSE)
     Route: 042
     Dates: start: 20231101, end: 20231101
  2. IBALIZUMAB [Suspect]
     Active Substance: IBALIZUMAB
     Dosage: 800 MG, EVERY OTHER WEEK (MAINTENANCE DOSE); IV PUSH
     Route: 042
     Dates: start: 20231114
  3. VITAMINS [Concomitant]
     Active Substance: VITAMINS
     Indication: Prophylaxis
     Dosage: 1 CHEWY GUMMY ONCE DAILY
     Route: 048
  4. ACETAMINOPHEN [Concomitant]
     Active Substance: ACETAMINOPHEN
     Indication: Arthralgia
     Dosage: 650 MG, PRN
     Route: 048
     Dates: start: 20230818
  5. ACETAMINOPHEN [Concomitant]
     Active Substance: ACETAMINOPHEN
     Indication: Arthralgia
     Dosage: 325 MG, PRN
     Route: 048
     Dates: start: 20220722
  6. ACETAMINOPHEN [Concomitant]
     Active Substance: ACETAMINOPHEN
     Indication: Subcutaneous abscess
     Dosage: 300 MG, PRN
     Route: 048
     Dates: start: 20230404, end: 20230503
  7. ACETAMINOPHEN [Concomitant]
     Active Substance: ACETAMINOPHEN
     Indication: Toothache
  8. DICLOFENAC SODIUM [Concomitant]
     Active Substance: DICLOFENAC\DICLOFENAC SODIUM
     Indication: Arthralgia
     Dosage: 2 G, QID
     Route: 061
     Dates: start: 20230818
  9. OMEPRAZOLE [Concomitant]
     Active Substance: OMEPRAZOLE
     Indication: Gastrooesophageal reflux disease
     Dosage: 20 MG, QD
     Route: 048
     Dates: start: 20220616, end: 20230615
  10. CEPHALEXIN [Concomitant]
     Active Substance: CEPHALEXIN
     Indication: Subcutaneous abscess
     Dosage: 500 MG, QID
     Route: 048
     Dates: start: 20230404, end: 20230414
  11. CODEINE [Concomitant]
     Active Substance: CODEINE
     Indication: Subcutaneous abscess
     Dosage: 30 MG, PRN
     Route: 048
     Dates: start: 20230404, end: 20230503

REACTIONS (1)
  - Rash [Recovered/Resolved]

NARRATIVE: CASE EVENT DATE: 20231103
